FAERS Safety Report 9772356 (Version 1)
Quarter: 2013Q4

REPORT INFORMATION
  Report Type: Spontaneous
  Country: US (occurrence: None)
  Receive Date: 20131218
  Receipt Date: 20131218
  Transmission Date: 20140711
  Serious: No
  Sender: FDA-Public Use
  Company Number: None

PATIENT
  Age: 80 Year
  Sex: Male

DRUGS (1)
  1. ADCIRCA [Suspect]
     Route: 048
     Dates: start: 20131121, end: 20131202

REACTIONS (2)
  - Back pain [None]
  - Musculoskeletal pain [None]
